FAERS Safety Report 5643808-7 (Version None)
Quarter: 2008Q1

REPORT INFORMATION
  Report Type: 
  Country: None (occurrence: None)
  Receive Date: 20080228
  Receipt Date: 20080222
  Transmission Date: 20080703
  Serious: Yes (Other)
  Sender: FDA-Public Use
  Company Number: US-MERCK-0802USA05313

PATIENT
  Sex: Female

DRUGS (3)
  1. FOSAMAX [Suspect]
     Route: 048
  2. FOSAMAX [Suspect]
     Route: 048
  3. FOSAMAX [Concomitant]
     Route: 048

REACTIONS (2)
  - ATRIAL FIBRILLATION [None]
  - CEREBROVASCULAR ACCIDENT [None]
